FAERS Safety Report 8577000-3 (Version None)
Quarter: 2012Q3

REPORT INFORMATION
  Report Type: 
  Country: None (occurrence: None)
  Receive Date: 20120807
  Receipt Date: 20120727
  Transmission Date: 20120928
  Serious: Yes (Hospitalization)
  Sender: FDA-Public Use
  Company Number: US-BAYER-2012-076723

PATIENT
  Age: 37 Year
  Sex: Female
  Weight: 114.3 kg

DRUGS (13)
  1. HYDROCHLOROTHIAZIDE [Concomitant]
     Dosage: 25 MG, DAILY
     Route: 048
  2. VICODIN [Concomitant]
  3. FUROSEMIDE [Concomitant]
     Dosage: 20 MG, MON,WED, FRIDAY
     Route: 048
  4. CLINDAMYCIN [Concomitant]
     Dosage: 300 MG, 2 TIMES DAILY FOR 7 DAYS
     Route: 048
     Dates: start: 20100519
  5. PREDNISOLONE [Concomitant]
  6. ATIVAN [Concomitant]
     Indication: INSOMNIA
  7. PROTONIX [Concomitant]
     Dosage: 40 MG, DAILY
     Route: 048
  8. BACLOFEN [Concomitant]
     Dosage: 10 MG, DAILY
     Route: 048
  9. DROSPIRENONE AND ETHINYL ESTRADIOL [Suspect]
  10. EFFEXOR XR [Concomitant]
     Dosage: 150 MG, DAILY
     Route: 048
  11. BUSPIRONE HCL [Concomitant]
     Dosage: 15 MG, 2-3 TIMES DAILY
     Route: 048
  12. ATIVAN [Concomitant]
     Indication: ANXIETY
  13. ADDERALL 5 [Concomitant]

REACTIONS (3)
  - PULMONARY EMBOLISM [None]
  - THROMBOPHLEBITIS SUPERFICIAL [None]
  - DEEP VEIN THROMBOSIS [None]
